FAERS Safety Report 5733913-9 (Version None)
Quarter: 2008Q2

REPORT INFORMATION
  Report Type: 
  Country: None (occurrence: None)
  Receive Date: 20080509
  Receipt Date: 20080124
  Transmission Date: 20081010
  Serious: Yes (Other)
  Sender: FDA-Public Use
  Company Number: US-BOEHRINGER INGELHEIM GMBH, GERMANY-2005-BP-12354BP

PATIENT
  Sex: Female
  Weight: 65 kg

DRUGS (43)
  1. MIRAPEX [Suspect]
     Indication: RESTLESS LEGS SYNDROME
     Route: 048
     Dates: start: 19990501, end: 20050623
  2. PRILOSEC [Concomitant]
     Indication: GASTROOESOPHAGEAL REFLUX DISEASE
  3. VICODIN [Concomitant]
  4. MENEST [Concomitant]
  5. EFFEXOR [Concomitant]
  6. VIOXX [Concomitant]
  7. NEURONTIN [Concomitant]
  8. TRAZODONE HCL [Concomitant]
  9. ESTRATEST [Concomitant]
  10. LIPITOR [Concomitant]
  11. ROXICET [Concomitant]
  12. PERCOCET [Concomitant]
  13. PREDNISONE TAB [Concomitant]
  14. E-MYCIN [Concomitant]
  15. CODEINE SUL TAB [Concomitant]
  16. ALLEGRA [Concomitant]
  17. TYLENOL [Concomitant]
  18. MOTRIN [Concomitant]
  19. EXCEDRIN (MIGRAINE) [Concomitant]
  20. AMOXICILLIN [Concomitant]
  21. DOXYCYCLINE [Concomitant]
  22. INDOCIN [Concomitant]
  23. ANUSOL HC [Concomitant]
  24. ATIVAN [Concomitant]
  25. ROBITUSSIN [Concomitant]
  26. ALBUTEROL [Concomitant]
  27. METHOCARBAMOL [Concomitant]
  28. AUGMENTIN '125' [Concomitant]
  29. FLONASE [Concomitant]
  30. LEVAQUIN [Concomitant]
  31. CONCERTA [Concomitant]
  32. STRATTERA [Concomitant]
  33. ASPIRIN [Concomitant]
  34. NALTREXONE HYDROCHLORIDE [Concomitant]
  35. ETODOLAC [Concomitant]
  36. NORTRIPTYLINE HCL [Concomitant]
  37. DIAZEPAM [Concomitant]
  38. CYCLOBENZAPRINE HCL [Concomitant]
  39. LIDODERM [Concomitant]
  40. ENDOCET [Concomitant]
  41. GUAIFENESIN [Concomitant]
  42. HYDROMORPHONE HCL [Concomitant]
  43. FLUCONAZOLE [Concomitant]

REACTIONS (5)
  - COMPULSIVE SHOPPING [None]
  - GAMBLING [None]
  - HYPERPHAGIA [None]
  - OBSESSIVE-COMPULSIVE DISORDER [None]
  - WEIGHT INCREASED [None]
